FAERS Safety Report 5793601-X (Version None)
Quarter: 2008Q2

REPORT INFORMATION
  Report Type: 
  Country: None (occurrence: None)
  Receive Date: 20080627
  Receipt Date: 20080612
  Transmission Date: 20081010
  Serious: Yes (Hospitalization)
  Sender: FDA-Public Use
  Company Number: PHHY2008SG10475

PATIENT
  Age: 34 Year
  Sex: Male

DRUGS (1)
  1. TEGRETOL [Suspect]
     Indication: BRACHIAL PLEXUS INJURY
     Dosage: 2 DF, UNK
     Route: 048
     Dates: start: 20040125, end: 20040203

REACTIONS (4)
  - EYE SWELLING [None]
  - LIP SWELLING [None]
  - SWOLLEN TONGUE [None]
  - URTICARIA [None]
